FAERS Safety Report 4640138-7 (Version None)
Quarter: 2005Q2

REPORT INFORMATION
  Report Type: 
  Country: None (occurrence: None)
  Receive Date: 20050415
  Receipt Date: 20050415
  Transmission Date: 20051028
  Serious: Yes (Other)
  Sender: FDA-Public Use
  Company Number: None

PATIENT
  Age: 76 Year
  Sex: Male
  Weight: 66.7 kg

DRUGS (7)
  1. DAPTOMYCIN 420 MG BY CUBIST PHARMACEUTICALS [Suspect]
     Indication: ENTEROCOCCAL INFECTION
     Dosage: 420 MG IV X 1 DOSE
     Route: 042
     Dates: start: 20050328
  2. DAPTOMYCIN 420 MG BY CUBIST PHARMACEUTICALS [Suspect]
     Indication: OSTEOMYELITIS
     Dosage: 420 MG IV X 1 DOSE
     Route: 042
     Dates: start: 20050328
  3. LOVENOX [Concomitant]
  4. LANSOPRAZOLE [Concomitant]
  5. ATENOLOL [Concomitant]
  6. SPIRONOLACTONE [Concomitant]
  7. MOXIFLOXACIN HCL [Concomitant]

REACTIONS (2)
  - ERYTHEMA [None]
  - TREMOR [None]
